FAERS Safety Report 8857814 (Version 2)
Quarter: 2012Q4

REPORT INFORMATION
  Report Type: 
  Country: CA (occurrence: CA)
  Receive Date: 20121024
  Receipt Date: 20121226
  Transmission Date: 20130627
  Serious: Yes (Other)
  Sender: FDA-Public Use
  Company Number: CA-ROCHE-1147722

PATIENT
  Age: 45 Year
  Sex: Female

DRUGS (8)
  1. XOLAIR [Suspect]
     Indication: ASTHMA
     Route: 058
     Dates: start: 20120822
  2. XOLAIR [Suspect]
     Route: 058
     Dates: start: 20121212
  3. ZENHALE [Concomitant]
  4. SPIRIVA [Concomitant]
  5. OMNARIS [Concomitant]
  6. RANITIDINE [Concomitant]
  7. ALVESCO [Concomitant]
  8. SALBUTAMOL [Concomitant]

REACTIONS (11)
  - Pneumonia [Unknown]
  - Back pain [Unknown]
  - Musculoskeletal chest pain [Unknown]
  - Muscle spasms [Unknown]
  - Dyspnoea [Unknown]
  - Sinusitis [Not Recovered/Not Resolved]
  - Hypersensitivity [Unknown]
  - Pharyngitis [Not Recovered/Not Resolved]
  - Nasopharyngitis [Not Recovered/Not Resolved]
  - Skin striae [Unknown]
  - Lower respiratory tract infection [Unknown]
